FAERS Safety Report 25348890 (Version 1)
Quarter: 2025Q2

REPORT INFORMATION
  Report Type: Spontaneous
  Country: AU (occurrence: AU)
  Receive Date: 20250522
  Receipt Date: 20250522
  Transmission Date: 20250717
  Serious: Yes (Hospitalization)
  Sender: PHARMACEUTICAL ASSOC
  Company Number: AU-PAIPHARMA-2025-AU-000085

PATIENT
  Age: 20 Year
  Sex: Male

DRUGS (1)
  1. LOPERAMIDE HYDROCHLORIDE [Suspect]
     Active Substance: LOPERAMIDE HYDROCHLORIDE
     Indication: Product used for unknown indication

REACTIONS (2)
  - Cardiotoxicity [Recovered/Resolved]
  - Overdose [Recovered/Resolved]
